FAERS Safety Report 18132101 (Version 1)
Quarter: 2020Q3

REPORT INFORMATION
  Report Type: Spontaneous
  Country: CN (occurrence: CN)
  Receive Date: 20200811
  Receipt Date: 20200811
  Transmission Date: 20201103
  Serious: Yes (Hospitalization)
  Sender: FDA-Public Use
  Company Number: CN-MICRO LABS LIMITED-ML2020-02327

PATIENT
  Age: 72 Year
  Sex: Female

DRUGS (7)
  1. GLEEVEC [Suspect]
     Active Substance: IMATINIB MESYLATE
     Dosage: 400 MG/DAY
     Dates: start: 20180806, end: 20180808
  2. GLEEVEC [Suspect]
     Active Substance: IMATINIB MESYLATE
     Dosage: REDUCED TO 200 MG/DAY
     Dates: start: 20190503, end: 20190525
  3. GLEEVEC [Suspect]
     Active Substance: IMATINIB MESYLATE
     Indication: GASTROINTESTINAL STROMAL TUMOUR
     Dosage: 400 MG/DAY
     Dates: start: 20180228, end: 20180616
  4. ATORVASTATIN [Suspect]
     Active Substance: ATORVASTATIN
     Dosage: 20 MG/DAY
  5. GLEEVEC [Suspect]
     Active Substance: IMATINIB MESYLATE
     Dosage: 100 MG/DAY FOR 6 DAYS
     Dates: start: 20190404, end: 20190409
  6. GLEEVEC [Suspect]
     Active Substance: IMATINIB MESYLATE
     Dosage: 300 MG/DAY
     Dates: start: 20190419, end: 20190502
  7. GLEEVEC [Suspect]
     Active Substance: IMATINIB MESYLATE
     Dosage: INCREASED TO 200 MG/DAY
     Dates: start: 20190410, end: 20190418

REACTIONS (3)
  - Eczema [Recovering/Resolving]
  - Periorbital oedema [Recovered/Resolved]
  - Drug interaction [Recovered/Resolved]
